FAERS Safety Report 5965688-2 (Version None)
Quarter: 2008Q4

REPORT INFORMATION
  Report Type: 
  Country: None (occurrence: None)
  Receive Date: 20081125
  Receipt Date: 20081120
  Transmission Date: 20090506
  Serious: Yes (Death, Hospitalization)
  Sender: FDA-Public Use
  Company Number: A0757443A

PATIENT
  Age: 77 Year
  Sex: Female

DRUGS (8)
  1. DIGOXIN [Suspect]
     Indication: DRUG USE FOR UNKNOWN INDICATION
     Dosage: .25MG PER DAY
     Route: 048
  2. FUROSEMIDE [Concomitant]
  3. KLOR-CON [Concomitant]
  4. CITRACAL [Concomitant]
  5. LORAZEPAM [Concomitant]
  6. VITAMINS [Concomitant]
  7. CYMBALTA [Concomitant]
  8. SOTALOL HCL [Concomitant]

REACTIONS (4)
  - DEATH [None]
  - FALL [None]
  - PAIN [None]
  - RESPIRATORY ARREST [None]
